FAERS Safety Report 13975361 (Version 1)
Quarter: 2017Q3

REPORT INFORMATION
  Report Type: Spontaneous
  Country: US (occurrence: US)
  Receive Date: 20170915
  Receipt Date: 20170915
  Transmission Date: 20171128
  Serious: No
  Sender: FDA-Public Use
  Company Number: US-PFIZER INC-2017401036

PATIENT
  Age: 65 Year
  Sex: Female

DRUGS (1)
  1. XELJANZ XR [Suspect]
     Active Substance: TOFACITINIB CITRATE
     Dosage: 11 MG, UNK

REACTIONS (10)
  - Dry skin [Unknown]
  - High density lipoprotein increased [Unknown]
  - Treatment noncompliance [Unknown]
  - Back pain [Unknown]
  - Myalgia [Unknown]
  - Joint stiffness [Unknown]
  - Foot deformity [Unknown]
  - Pruritus [Unknown]
  - Arthralgia [Unknown]
  - Joint range of motion decreased [Unknown]
